FAERS Safety Report 10135923 (Version 2)
Quarter: 2014Q2

REPORT INFORMATION
  Report Type: Spontaneous
  Country: US (occurrence: US)
  Receive Date: 20140428
  Receipt Date: 20140603
  Transmission Date: 20141212
  Serious: No
  Sender: FDA-Public Use
  Company Number: US-009507513-1404USA014090

PATIENT
  Age: 34 Year
  Sex: Female
  Weight: 98.87 kg

DRUGS (6)
  1. NEXPLANON [Suspect]
     Indication: CONTRACEPTION
     Dosage: UNK
     Route: 059
     Dates: start: 20130723
  2. ALPRAZOLAM [Concomitant]
  3. CYMBALTA [Concomitant]
  4. METOPROLOL TARTRATE [Concomitant]
  5. SEROQUEL [Concomitant]
  6. PRILOSEC [Concomitant]

REACTIONS (5)
  - Breast pain [Unknown]
  - Weight increased [Unknown]
  - Hypertension [Unknown]
  - Discomfort [Unknown]
  - Hot flush [Unknown]
